FAERS Safety Report 15080939 (Version 1)
Quarter: 2018Q2

REPORT INFORMATION
  Report Type: Spontaneous
  Country: US (occurrence: US)
  Receive Date: 20180628
  Receipt Date: 20180628
  Transmission Date: 20180711
  Serious: No
  Sender: FDA-Public Use
  Company Number: US-TEVA-2018-US-915396

PATIENT
  Age: 42 Year
  Sex: Male
  Weight: 94.43 kg

DRUGS (1)
  1. OMEPRAZOLE DELAYED RELEASE CAPSULES,10 MG, 20 MG AND 30 MG [Suspect]
     Active Substance: OMEPRAZOLE
     Route: 065

REACTIONS (3)
  - Hiatus hernia [Unknown]
  - Drug ineffective [Unknown]
  - Chest discomfort [Unknown]
